FAERS Safety Report 8781895 (Version 2)
Quarter: 2012Q4

REPORT INFORMATION
  Report Type: 
  Country: US (occurrence: US)
  Receive Date: 20120913
  Receipt Date: 20121004
  Transmission Date: 20130627
  Serious: No
  Sender: FDA-Public Use
  Company Number: US-BAYER-2012-093197

PATIENT
  Age: 32 Year
  Sex: Female

DRUGS (3)
  1. MIRENA [Suspect]
     Indication: CONTRACEPTION
     Dosage: 20 mcg/24hr, CONT
     Route: 015
     Dates: start: 20120730, end: 20120810
  2. MIRENA [Suspect]
     Indication: BACK PAIN
  3. MIRENA [Suspect]
     Indication: PELVIC PAIN

REACTIONS (5)
  - Medical device discomfort [None]
  - Intentional medical device removal by patient [None]
  - Pain [None]
  - Abdominal pain [None]
  - Device expulsion [None]
